FAERS Safety Report 10590499 (Version 5)
Quarter: 2015Q4

REPORT INFORMATION
  Report Type: Spontaneous
  Country: US (occurrence: US)
  Receive Date: 20141118
  Receipt Date: 20151111
  Transmission Date: 20160304
  Serious: Yes (Hospitalization, Disabling, Other)
  Sender: FDA-Public Use
  Company Number: US-TAKEDA-TPA2013A02727

PATIENT
  Age: 74 Year
  Sex: Male
  Weight: 90.7 kg

DRUGS (6)
  1. ULORIC [Suspect]
     Active Substance: FEBUXOSTAT
     Dosage: UNK
     Route: 048
     Dates: end: 201506
  2. TRAZODONE [Concomitant]
     Active Substance: TRAZODONE HYDROCHLORIDE
     Dosage: UNK
     Route: 048
  3. ATENOLOL. [Concomitant]
     Active Substance: ATENOLOL
     Indication: HYPERTENSION
     Dosage: UNK
     Route: 048
  4. PAXIL [Concomitant]
     Active Substance: PAROXETINE HYDROCHLORIDE
     Dosage: UNK
     Route: 048
  5. ULORIC [Suspect]
     Active Substance: FEBUXOSTAT
     Indication: GOUT
     Dosage: 40 MG, QD (1 TO 1.5 MONTHS)
     Route: 048
     Dates: start: 2012, end: 2013
  6. ULORIC [Suspect]
     Active Substance: FEBUXOSTAT
     Dosage: 40 MG, QD
     Route: 048
     Dates: start: 2013, end: 201502

REACTIONS (20)
  - Gout [Not Recovered/Not Resolved]
  - Fatigue [Not Recovered/Not Resolved]
  - Cerebrovascular accident [Unknown]
  - Macular fibrosis [Unknown]
  - Local swelling [Not Recovered/Not Resolved]
  - Hip fracture [Unknown]
  - Visual impairment [Unknown]
  - Condition aggravated [Recovered/Resolved]
  - Pain in extremity [Not Recovered/Not Resolved]
  - Swelling [Not Recovered/Not Resolved]
  - Retinal disorder [Not Recovered/Not Resolved]
  - Dry eye [Recovered/Resolved]
  - Drug ineffective [Unknown]
  - Vision blurred [Recovering/Resolving]
  - Blepharitis [Unknown]
  - Retinal oedema [Unknown]
  - Myocardial infarction [Recovered/Resolved]
  - Sjogren^s syndrome [Unknown]
  - Meibomian gland dysfunction [Unknown]
  - Retinitis [Unknown]

NARRATIVE: CASE EVENT DATE: 20120411
